FAERS Safety Report 12297517 (Version 2)
Quarter: 2017Q2

REPORT INFORMATION
  Report Type: Report from Study
  Country: None (occurrence: BR)
  Receive Date: 20160422
  Receipt Date: 20170508
  Transmission Date: 20170830
  Serious: Yes (Other)
  Sender: FDA-Public Use
  Company Number: BR-ABBVIE-16K-020-1608799-00

PATIENT
  Age: 59 Year
  Sex: Male
  Weight: 105 kg

DRUGS (13)
  1. SIMVASTATIN. [Concomitant]
     Active Substance: SIMVASTATIN
     Indication: CARDIAC DISORDER
     Route: 048
     Dates: start: 2011
  2. ALDOSTERONE [Concomitant]
     Active Substance: ALDOSTERONE
     Indication: PRODUCT USED FOR UNKNOWN INDICATION
     Route: 048
     Dates: start: 1999
  3. HIXIZINE [Concomitant]
     Active Substance: HYDROXYZINE HYDROCHLORIDE
     Indication: HYPERSENSITIVITY
     Dosage: AS NEEDED
     Route: 048
  4. CODATEN [Concomitant]
     Active Substance: CODEINE PHOSPHATE\DICLOFENAC SODIUM
     Indication: SPONDYLITIS
     Dosage: EVERY 8 HOURS
     Route: 048
  5. DIAMICRON [Concomitant]
     Active Substance: GLICLAZIDE
     Indication: DIABETES MELLITUS
     Route: 048
     Dates: start: 2015
  6. TORLOS [Concomitant]
     Indication: HYPERTENSION
     Route: 050
     Dates: start: 1999
  7. FUROSEMIDE. [Concomitant]
     Active Substance: FUROSEMIDE
     Indication: HYPERTENSION
     Route: 048
     Dates: start: 2011
  8. HUMIRA [Suspect]
     Active Substance: ADALIMUMAB
     Indication: ANKYLOSING SPONDYLITIS
     Route: 058
     Dates: start: 20100108, end: 201703
  9. PARACETAMOL [Concomitant]
     Active Substance: ACETAMINOPHEN
     Indication: PAIN
     Route: 048
  10. AMLODIPINE [Concomitant]
     Active Substance: AMLODIPINE BESYLATE
     Indication: HYPERTENSION
     Route: 048
     Dates: start: 1999
  11. INFRALAX [Concomitant]
     Active Substance: ACETAMINOPHEN\CAFFEINE\CARISOPRODOL\DICLOFENAC SODIUM
     Indication: SPONDYLITIS
     Dosage: EVERY 8 HOURS
     Route: 048
  12. GLIFAGE [Concomitant]
     Active Substance: METFORMIN HYDROCHLORIDE
     Indication: DIABETES MELLITUS
     Route: 048
     Dates: start: 2016
  13. RIVOTRIL [Concomitant]
     Active Substance: CLONAZEPAM
     Indication: SLEEP DISORDER THERAPY
     Route: 048
     Dates: start: 2006

REACTIONS (3)
  - Coronary artery occlusion [Not Recovered/Not Resolved]
  - Ischaemia [Unknown]
  - Blood uric acid abnormal [Unknown]

NARRATIVE: CASE EVENT DATE: 20160411
